FAERS Safety Report 9056343 (Version 4)
Quarter: 2013Q1

REPORT INFORMATION
  Report Type: Spontaneous
  Country: IT (occurrence: IT)
  Receive Date: 20130204
  Receipt Date: 20130225
  Transmission Date: 20140127
  Serious: Yes (Hospitalization)
  Sender: FDA-Public Use
  Company Number: IT-BAYER-2013-013115

PATIENT
  Age: 83 Year
  Sex: Female
  Weight: 62.59 kg

DRUGS (2)
  1. ALEVE [Suspect]
     Indication: PAIN
     Dosage: 1 DF, BID
     Route: 048
     Dates: start: 20120506, end: 20120605
  2. ADVIL [Suspect]

REACTIONS (3)
  - Cerebrovascular accident [Recovered/Resolved]
  - Anxiety [None]
  - Drug effect decreased [None]
